FAERS Safety Report 9294778 (Version 1)
Quarter: 2013Q1

REPORT INFORMATION
  Report Type: Spontaneous
  Country: US (occurrence: None)
  Receive Date: 20121214
  Receipt Date: 20121214
  Transmission Date: 20140127
  Serious: Yes (Other)
  Sender: FDA-Public Use
  Company Number: 1205USA03512

PATIENT
  Sex: 0

DRUGS (2)
  1. JANUVIA (SITAGLIPTIN PHOSPHATE) [Suspect]
     Route: 048
  2. JANUMET (SITAGLIPTIN PHOSPHATE (+) METFORMIN HYDROCHLORIDE) FILM-COATED TABLET [Suspect]
     Route: 048

REACTIONS (4)
  - Pancreatitis [None]
  - Nausea [None]
  - Abdominal pain [None]
  - Vomiting [None]
